FAERS Safety Report 5521580-9 (Version None)
Quarter: 2007Q4

REPORT INFORMATION
  Report Type: 
  Country: None (occurrence: None)
  Receive Date: 20071120
  Receipt Date: 20071109
  Transmission Date: 20080405
  Serious: Yes (Other)
  Sender: FDA-Public Use
  Company Number: US-JNJFOC-20071103911

PATIENT
  Sex: Male
  Weight: 106.6 kg

DRUGS (7)
  1. FENTANYL TRANSDERMAL SYSTEM [Suspect]
     Indication: PAIN
     Route: 062
  2. DURAGESIC-100 [Suspect]
     Indication: PAIN
     Route: 062
  3. NOVOLIN N [Concomitant]
     Indication: DIABETES MELLITUS
     Dosage: IN THE MORNING
     Route: 058
  4. NOVOLIN R [Concomitant]
     Indication: DIABETES MELLITUS
     Dosage: PM
     Route: 058
  5. COZAAR [Concomitant]
     Indication: HYPERTENSION
     Route: 048
  6. OMEPRAZOLE [Concomitant]
     Indication: DYSPEPSIA
     Route: 048
  7. DILTIAZEM HCL [Concomitant]
     Indication: BLOOD PRESSURE
     Route: 048

REACTIONS (3)
  - INAPPROPRIATE SCHEDULE OF DRUG ADMINISTRATION [None]
  - INTENTIONAL DRUG MISUSE [None]
  - STOMACH DISCOMFORT [None]
